FAERS Safety Report 14349902 (Version 2)
Quarter: 2022Q1

REPORT INFORMATION
  Report Type: Spontaneous
  Country: BE (occurrence: BE)
  Receive Date: 20180104
  Receipt Date: 20220314
  Transmission Date: 20220424
  Serious: Yes (Other)
  Sender: FDA-Public Use
  Company Number: BE-AUROBINDO-AUR-APL-2018-000047

PATIENT
  Age: 41 Year
  Sex: Female

DRUGS (1)
  1. MOXIFLOXACIN [Suspect]
     Active Substance: MOXIFLOXACIN
     Indication: Bronchitis
     Dosage: UNK
     Route: 048

REACTIONS (8)
  - Pigment dispersion syndrome [Not Recovered/Not Resolved]
  - Mydriasis [Not Recovered/Not Resolved]
  - Gonioscopy abnormal [Not Recovered/Not Resolved]
  - Ocular hyperaemia [Not Recovered/Not Resolved]
  - Iris transillumination defect [Not Recovered/Not Resolved]
  - Pupillary light reflex tests abnormal [Not Recovered/Not Resolved]
  - Photophobia [Not Recovered/Not Resolved]
  - Iris hypopigmentation [Unknown]
